FAERS Safety Report 5584901-7 (Version None)
Quarter: 2008Q1

REPORT INFORMATION
  Report Type: 
  Country: None (occurrence: None)
  Receive Date: 20080104
  Receipt Date: 20071221
  Transmission Date: 20080703
  Serious: Yes (Hospitalization, Other)
  Sender: FDA-Public Use
  Company Number: 2007-169079-NL

PATIENT
  Age: 27 Year
  Sex: Female
  Weight: 126 kg

DRUGS (1)
  1. IMPLANON [Suspect]
     Indication: CONTRACEPTION
     Dosage: SUBDERMAL
     Route: 059
     Dates: start: 20070410, end: 20071220

REACTIONS (2)
  - HAEMOGLOBIN DECREASED [None]
  - MENORRHAGIA [None]
